FAERS Safety Report 7767553-7 (Version None)
Quarter: 2011Q3

REPORT INFORMATION
  Report Type: 
  Country: None (occurrence: None)
  Receive Date: 20110922
  Receipt Date: 20110915
  Transmission Date: 20111222
  Serious: Yes (Death, Hospitalization)
  Sender: FDA-Public Use
  Company Number: FR-ASTELLAS-2011EU006318

PATIENT
  Age: 56 Year
  Sex: Female
  Weight: 62 kg

DRUGS (1)
  1. MICAFUNGIN INJECTION [Suspect]
     Indication: SYSTEMIC CANDIDA
     Dosage: 100 MG, UNKNOWN/D
     Route: 042
     Dates: start: 20110530

REACTIONS (2)
  - DEATH [None]
  - HYPOVOLAEMIC SHOCK [None]
